FAERS Safety Report 13459829 (Version 2)
Quarter: 2018Q2

REPORT INFORMATION
  Report Type: Spontaneous
  Country: US (occurrence: US)
  Receive Date: 20170420
  Receipt Date: 20180424
  Transmission Date: 20180711
  Serious: No
  Sender: FDA-Public Use
  Company Number: US-TEVA-741751ACC

PATIENT
  Sex: Male

DRUGS (3)
  1. OLANZAPINE. [Suspect]
     Active Substance: OLANZAPINE
     Dosage: 10 MILLIGRAM DAILY; AT NIGHT
     Dates: start: 20170212
  2. OLANZAPINE. [Suspect]
     Active Substance: OLANZAPINE
  3. MULTIVITAMINS [Concomitant]
     Active Substance: VITAMINS
     Dosage: 2 DOSAGE FORMS DAILY;

REACTIONS (8)
  - Speech disorder [Not Recovered/Not Resolved]
  - Polyuria [Not Recovered/Not Resolved]
  - Dry mouth [Not Recovered/Not Resolved]
  - Thirst [Not Recovered/Not Resolved]
  - Cognitive disorder [Not Recovered/Not Resolved]
  - Increased appetite [Not Recovered/Not Resolved]
  - Fear [Unknown]
  - Weight increased [Not Recovered/Not Resolved]

NARRATIVE: CASE EVENT DATE: 20170212
